FAERS Safety Report 4656590-7 (Version None)
Quarter: 2005Q2

REPORT INFORMATION
  Report Type: 
  Country: None (occurrence: None)
  Receive Date: 20050506
  Receipt Date: 20050427
  Transmission Date: 20051028
  Serious: No
  Sender: FDA-Public Use
  Company Number: CIP05000345

PATIENT
  Age: 72 Year
  Sex: Male

DRUGS (6)
  1. ACTONEL [Suspect]
     Indication: OSTEOPOROSIS
     Dosage: 35 MG, ONCE, ORAL
     Route: 048
     Dates: start: 20050203, end: 20050208
  2. METFORMIN HCL [Concomitant]
  3. CALTRATE (CALCIUM CARBONATE) [Concomitant]
  4. THYROXINE   APS  (LEVOTHYROXINE SODIUM) [Concomitant]
  5. TELFAST (FEXOFENADINE) [Concomitant]
  6. PARLODEL [Concomitant]

REACTIONS (3)
  - GENERALISED OEDEMA [None]
  - SWELLING [None]
  - SWELLING FACE [None]
